FAERS Safety Report 10577505 (Version 2)
Quarter: 2014Q4

REPORT INFORMATION
  Report Type: Spontaneous
  Country: SE (occurrence: SE)
  Receive Date: 20141111
  Receipt Date: 20141117
  Transmission Date: 20150529
  Serious: Yes (Other)
  Sender: FDA-Public Use
  Company Number: SE-GILEAD-2014-0121979

PATIENT
  Age: 63 Year
  Sex: Male

DRUGS (6)
  1. INDERAL [Concomitant]
     Active Substance: PROPRANOLOL HYDROCHLORIDE
  2. OLYSIO [Suspect]
     Active Substance: SIMEPREVIR
     Indication: HEPATITIS C
     Route: 048
     Dates: start: 20140716, end: 20141010
  3. AMBROXOL [Concomitant]
     Active Substance: AMBROXOL
  4. SOVALDI [Suspect]
     Active Substance: SOFOSBUVIR
     Indication: HEPATITIS C
     Route: 048
     Dates: start: 20140716, end: 20141010
  5. VITAMIN D [Concomitant]
     Active Substance: CHOLECALCIFEROL
  6. LACTULOSE. [Concomitant]
     Active Substance: LACTULOSE

REACTIONS (2)
  - Transaminases increased [Recovered/Resolved]
  - Hepatic function abnormal [Recovered/Resolved]

NARRATIVE: CASE EVENT DATE: 20141009
